FAERS Safety Report 9937623 (Version 3)
Quarter: 2014Q2

REPORT INFORMATION
  Report Type: Spontaneous
  Country: JP (occurrence: JP)
  Receive Date: 20140303
  Receipt Date: 20140411
  Transmission Date: 20141212
  Serious: Yes (Death, Life-Threatening, Other)
  Sender: FDA-Public Use
  Company Number: JP-ROCHE-1353882

PATIENT
  Age: 59 Year
  Sex: Female
  Weight: 57 kg

DRUGS (12)
  1. PERJETA [Suspect]
     Indication: BREAST CANCER
     Dosage: FORM STRENGTH: 420 MG/ 14 ML
     Route: 041
     Dates: start: 20131125, end: 20131125
  2. HERCEPTIN [Suspect]
     Indication: BREAST CANCER
     Route: 041
     Dates: start: 200705, end: 201308
  3. HERCEPTIN [Suspect]
     Route: 041
     Dates: start: 20131125, end: 20131125
  4. DOCETAXEL [Suspect]
     Indication: BREAST CANCER
     Dosage: LAST DOSE : 25/NOV/2013
     Route: 041
     Dates: start: 20131125
  5. PACLITAXEL [Concomitant]
     Indication: BREAST CANCER
     Route: 041
     Dates: start: 200705, end: 201308
  6. VOLTAREN SR [Concomitant]
     Route: 048
     Dates: start: 20131115, end: 20131203
  7. GAMOFA D [Concomitant]
     Indication: PROPHYLAXIS
     Route: 048
     Dates: start: 20131115, end: 20131203
  8. CALONAL [Concomitant]
     Route: 048
     Dates: start: 20131115, end: 20131203
  9. LYRICA [Concomitant]
     Route: 048
     Dates: start: 20131115, end: 20131203
  10. DECADRON [Concomitant]
     Indication: PROPHYLAXIS
     Route: 048
     Dates: start: 20131125, end: 20131128
  11. DEXART [Concomitant]
     Indication: PROPHYLAXIS
     Dosage: SINGLE DOSE ADMINISTRATION
     Route: 042
     Dates: start: 20131125, end: 20131125
  12. CHLOR-TRIMETON [Concomitant]
     Indication: PROPHYLAXIS
     Dosage: SINGLE DOSE ADMINISTRATION
     Route: 042
     Dates: start: 20131125, end: 20131125

REACTIONS (5)
  - Altered state of consciousness [Fatal]
  - Sepsis [Fatal]
  - Breast cancer [Fatal]
  - Diarrhoea [Recovered/Resolved]
  - Anaemia [Not Recovered/Not Resolved]
